FAERS Safety Report 17908310 (Version 1)
Quarter: 2020Q2

REPORT INFORMATION
  Report Type: Report from Study
  Country: US (occurrence: US)
  Receive Date: 20200617
  Receipt Date: 20200617
  Transmission Date: 20200714
  Serious: No
  Sender: FDA-Public Use
  Company Number: US-TOLMAR, INC.-20US020133

PATIENT
  Age: 61 Year
  Sex: Male

DRUGS (2)
  1. ELIGARD [Suspect]
     Active Substance: LEUPROLIDE ACETATE
     Indication: PROSTATE CANCER
     Dosage: UNK UNK, Q 6 MONTH
     Route: 058
     Dates: start: 20200131
  2. ELIGARD [Suspect]
     Active Substance: LEUPROLIDE ACETATE
     Dosage: UNK UNK, Q 3 MONTH
     Route: 058
     Dates: start: 20191017

REACTIONS (1)
  - Wrong schedule [Unknown]

NARRATIVE: CASE EVENT DATE: 20200127
